FAERS Safety Report 4843714-1 (Version None)
Quarter: 2005Q4

REPORT INFORMATION
  Report Type: 
  Country: None (occurrence: None)
  Receive Date: 20051129
  Receipt Date: 20051111
  Transmission Date: 20060501
  Serious: No
  Sender: FDA-Public Use
  Company Number: CA200511001415

PATIENT
  Age: 42 Year
  Sex: Male

DRUGS (5)
  1. CIALIS [Suspect]
  2. METFORMIN HCL [Concomitant]
  3. AVAPRO [Concomitant]
  4. ASPIRIN ^BAYER^ (ACEYTLSALYLIC ACID) [Concomitant]
  5. ALTACE [Concomitant]

REACTIONS (3)
  - CHROMATOPSIA [None]
  - CYANOPSIA [None]
  - VISION BLURRED [None]
